FAERS Safety Report 4874948-8 (Version None)
Quarter: 2006Q1

REPORT INFORMATION
  Report Type: 
  Country: None (occurrence: None)
  Receive Date: 20060105
  Receipt Date: 20051228
  Transmission Date: 20060701
  Serious: Yes (Other)
  Sender: FDA-Public Use
  Company Number: 200514260BCC

PATIENT
  Sex: Male
  Weight: 67.1324 kg

DRUGS (4)
  1. ALEVE (CAPLET) [Suspect]
     Dosage: 440 MG, BID, ORAL
     Route: 048
     Dates: end: 20050901
  2. ALEVE (CAPLET) [Suspect]
     Dosage: 440 MG, BID, ORAL
     Route: 048
     Dates: start: 20051020
  3. NAPROSYN [Concomitant]
  4. EXTRA STRENGTH TYLENOL [Concomitant]

REACTIONS (1)
  - BLOOD PRESSURE INCREASED [None]
